FAERS Safety Report 19910790 (Version 2)
Quarter: 2021Q4

REPORT INFORMATION
  Report Type: Spontaneous
  Country: US (occurrence: US)
  Receive Date: 20211004
  Receipt Date: 20211014
  Transmission Date: 20220303
  Serious: Yes (Hospitalization, Other)
  Sender: FDA-Public Use
  Company Number: US-MLMSERVICE-20210915-3108058-1

PATIENT
  Age: 31 Year
  Sex: Male

DRUGS (19)
  1. PHENYLEPHRINE [Suspect]
     Active Substance: PHENYLEPHRINE HYDROCHLORIDE
     Indication: Vasopressive therapy
     Dosage: UNK
     Route: 065
  2. PHENYLEPHRINE [Suspect]
     Active Substance: PHENYLEPHRINE HYDROCHLORIDE
     Indication: Hypotension
  3. EPINEPHRINE [Suspect]
     Active Substance: EPINEPHRINE
     Indication: Hypotension
     Dosage: UNK
     Route: 065
  4. EPINEPHRINE [Suspect]
     Active Substance: EPINEPHRINE
     Indication: Vasopressive therapy
  5. NOREPINEPHRINE BITARTRATE [Suspect]
     Active Substance: NOREPINEPHRINE BITARTRATE
     Indication: Hypotension
     Dosage: UNK
     Route: 065
  6. NOREPINEPHRINE BITARTRATE [Suspect]
     Active Substance: NOREPINEPHRINE BITARTRATE
     Indication: Vasopressive therapy
  7. ANAKINRA [Concomitant]
     Active Substance: ANAKINRA
     Indication: COVID-19 treatment
     Dosage: UNK
     Route: 065
  8. AMIODARONE [Concomitant]
     Active Substance: AMIODARONE
     Indication: Atrial fibrillation
     Dosage: UNK
     Route: 065
  9. AZITHROMYCIN ANHYDROUS [Concomitant]
     Active Substance: AZITHROMYCIN ANHYDROUS
     Indication: Evidence based treatment
     Dosage: UNK
     Route: 065
  10. ARGATROBAN [Concomitant]
     Active Substance: ARGATROBAN
     Indication: Anticoagulant therapy
     Dosage: CONTINUOUS INFUSION
     Route: 065
  11. CEFTRIAXONE [Concomitant]
     Active Substance: CEFTRIAXONE
     Indication: Evidence based treatment
     Dosage: UNK
     Route: 065
  12. CHLOROQUINE [Concomitant]
     Active Substance: CHLOROQUINE
     Indication: COVID-19 treatment
     Dosage: UNK
     Route: 065
  13. THIAMINE [Concomitant]
     Active Substance: THIAMINE
     Indication: COVID-19 treatment
     Dosage: UNK
     Route: 065
  14. MEPREDNISONE [Concomitant]
     Active Substance: MEPREDNISONE
     Indication: Respiratory acidosis
     Dosage: UNK
     Route: 065
  15. MEPREDNISONE [Concomitant]
     Active Substance: MEPREDNISONE
     Indication: Acute respiratory distress syndrome
  16. MEPREDNISONE [Concomitant]
     Active Substance: MEPREDNISONE
     Indication: COVID-19 treatment
  17. MEPREDNISONE [Concomitant]
     Active Substance: MEPREDNISONE
     Indication: Hypoxia
  18. VITAMIN C [Concomitant]
     Active Substance: ASCORBIC ACID
     Indication: COVID-19 treatment
     Dosage: UNK
     Route: 065
  19. METHYLPREDNISOLONE [Concomitant]
     Active Substance: METHYLPREDNISOLONE
     Indication: Hypoxia
     Dosage: UNK
     Route: 065

REACTIONS (2)
  - Extremity necrosis [Recovered/Resolved]
  - Dry gangrene [Recovered/Resolved]
